FAERS Safety Report 6148495 (Version 4)
Quarter: 2012Q4

REPORT INFORMATION
  Report Type: Report from Study
  Country: US (occurrence: US)
  Receive Date: 20061017
  Receipt Date: 20121019
  Transmission Date: 20130627
  Serious: Yes (Hospitalization, Other)
  Sender: FDA-Public Use
  Company Number: US-BRISTOL-MYERS SQUIBB COMPANY-13538004

PATIENT
  Age: 71 Year
  Sex: Male
  Weight: 90 kg

DRUGS (2)
  1. ERBITUX [Suspect]
     Indication: HEAD AND NECK CANCER
     Route: 042
     Dates: start: 20060912, end: 20061003
  2. TAXOTERE [Suspect]
     Indication: HEAD AND NECK CANCER
     Dates: start: 20060912, end: 20061003

REACTIONS (7)
  - Renal tubular necrosis [Unknown]
  - Atrial fibrillation [Recovered/Resolved]
  - Pneumonia [Recovered/Resolved]
  - Confusional state [Unknown]
  - Thrombotic thrombocytopenic purpura [Unknown]
  - Blood creatinine increased [Not Recovered/Not Resolved]
  - Activated partial thromboplastin time prolonged [Unknown]
